FAERS Safety Report 4861258-8 (Version None)
Quarter: 2005Q4

REPORT INFORMATION
  Report Type: 
  Country: None (occurrence: None)
  Receive Date: 20051220
  Receipt Date: 20050330
  Transmission Date: 20060501
  Serious: Yes (Hospitalization, Disabling)
  Sender: FDA-Public Use
  Company Number: US-MERCK-0504USA00150

PATIENT
  Age: 77 Year
  Sex: Male
  Weight: 100 kg

DRUGS (2)
  1. VIOXX [Suspect]
     Indication: OSTEOARTHRITIS
     Route: 048
     Dates: start: 19991018, end: 20030125
  2. TYLENOL [Concomitant]
     Route: 065

REACTIONS (17)
  - ASPARTATE AMINOTRANSFERASE INCREASED [None]
  - ATRIAL FIBRILLATION [None]
  - BLOOD BILIRUBIN INCREASED [None]
  - BLOOD GLUCOSE INCREASED [None]
  - BLOOD POTASSIUM INCREASED [None]
  - BRONCHITIS ACUTE [None]
  - CHRONIC OBSTRUCTIVE PULMONARY DISEASE [None]
  - COLITIS [None]
  - EPISTAXIS [None]
  - INGUINAL HERNIA [None]
  - NASAL CONGESTION [None]
  - NEPHROLITHIASIS [None]
  - OEDEMA PERIPHERAL [None]
  - POLYTRAUMATISM [None]
  - PULMONARY EMBOLISM [None]
  - RENAL CYST [None]
  - VENOUS INSUFFICIENCY [None]
